FAERS Safety Report 18355092 (Version 1)
Quarter: 2020Q4

REPORT INFORMATION
  Report Type: Spontaneous
  Country: US (occurrence: US)
  Receive Date: 20201006
  Receipt Date: 20201006
  Transmission Date: 20210114
  Serious: Yes (Hospitalization)
  Sender: FDA-Public Use
  Company Number: None

PATIENT
  Age: 60 Year
  Sex: Female
  Weight: 90 kg

DRUGS (3)
  1. FUROSEMIDE (FUROSEMIDE 40MG TAB) [Suspect]
     Active Substance: FUROSEMIDE
     Indication: CIRRHOSIS ALCOHOLIC
     Dosage: IN THE MORNING
     Route: 048
     Dates: start: 20170527, end: 20200706
  2. SPIRONOLACTONE (SPIRONOLACTONE 25MG TAB) [Suspect]
     Active Substance: SPIRONOLACTONE
     Indication: CIRRHOSIS ALCOHOLIC
     Route: 048
     Dates: start: 20200624, end: 20200706
  3. FUROSEMIDE (FUROSEMIDE 40MG TAB) [Suspect]
     Active Substance: FUROSEMIDE
     Indication: LIVER DISORDER
     Dosage: IN THE MORNING
     Route: 048
     Dates: start: 20170527, end: 20200706

REACTIONS (3)
  - Peripheral swelling [None]
  - Stevens-Johnson syndrome [None]
  - Urticaria [None]

NARRATIVE: CASE EVENT DATE: 20200705
